FAERS Safety Report 8005617-3 (Version None)
Quarter: 2011Q4

REPORT INFORMATION
  Report Type: 
  Country: None (occurrence: None)
  Receive Date: 20111223
  Receipt Date: 20111220
  Transmission Date: 20120403
  Serious: Yes (Hospitalization)
  Sender: FDA-Public Use
  Company Number: RU-GENZYME-CAMP-1001899

PATIENT
  Sex: Male
  Weight: 59 kg

DRUGS (12)
  1. ALEMTUZUMAB [Suspect]
     Dosage: 12 MG, QD
     Route: 042
     Dates: start: 20040517, end: 20040521
  2. MILGAMMA [Concomitant]
     Indication: TONSILLITIS
     Dosage: UNK
     Dates: start: 20110601, end: 20110601
  3. KETOPROFEN [Concomitant]
     Indication: PRODUCT USED FOR UNKNOWN INDICATION
     Dosage: 50 MG, ONCE
     Route: 048
     Dates: start: 20110428, end: 20110428
  4. ALEMTUZUMAB [Suspect]
     Indication: MULTIPLE SCLEROSIS
     Dosage: 12 MG, QD
     Route: 042
     Dates: start: 20090505, end: 20090507
  5. CIPROFLOXACIN [Concomitant]
     Indication: TONSILLITIS
     Dosage: UNK
     Route: 048
     Dates: start: 20110601, end: 20110601
  6. AMOXICILLIN AND CLAVULANATE POTASSIUM [Concomitant]
     Indication: TONSILLITIS
     Dosage: 1.2 G, BID
     Route: 042
  7. ALEMTUZUMAB [Suspect]
     Dosage: 12 MG, QD
     Route: 042
     Dates: start: 20050523, end: 20050525
  8. METHYLPREDNISOLONE [Concomitant]
     Dosage: 1000 MG, UNK
     Route: 042
     Dates: start: 20050523, end: 20050525
  9. METHYLPREDNISOLONE [Concomitant]
     Dosage: 1000 MG, UNK
     Route: 042
     Dates: start: 20090505, end: 20090507
  10. LEVOTHYROXINE SODIUM [Concomitant]
     Indication: THYROID HORMONE REPLACEMENT THERAPY
     Dosage: 100 MCG, QD
     Route: 048
     Dates: start: 20110401
  11. METHYLPREDNISOLONE [Concomitant]
     Indication: MULTIPLE SCLEROSIS
     Dosage: 1000 MG, UNK
     Route: 042
     Dates: start: 20040517, end: 20040519
  12. HEXETIDINE [Concomitant]
     Indication: TONSILLITIS
     Dosage: UNK
     Dates: start: 20110601, end: 20110601

REACTIONS (1)
  - ENDOCRINE OPHTHALMOPATHY [None]
